FAERS Safety Report 9292011 (Version 1)
Quarter: 2013Q2

REPORT INFORMATION
  Report Type: Spontaneous
  Country: US (occurrence: US)
  Receive Date: 20130516
  Receipt Date: 20130516
  Transmission Date: 20140414
  Serious: No
  Sender: FDA-Public Use
  Company Number: US-PFIZER INC-2013150716

PATIENT
  Age: 44 Year
  Sex: Male
  Weight: 70.3 kg

DRUGS (3)
  1. CHANTIX [Suspect]
     Indication: SMOKING CESSATION THERAPY
     Dosage: UNK
     Dates: start: 20130512
  2. BYSTOLIC [Concomitant]
     Indication: HYPERTENSION
     Dosage: 10 MG, DAILY
  3. XANAX [Concomitant]
     Indication: ANXIETY
     Dosage: 0.5 MG, AS NEEDED

REACTIONS (2)
  - Intentional drug misuse [Unknown]
  - Feeling abnormal [Unknown]
